FAERS Safety Report 7000097-9 (Version None)
Quarter: 2010Q3

REPORT INFORMATION
  Report Type: 
  Country: None (occurrence: None)
  Receive Date: 20100920
  Receipt Date: 20100107
  Transmission Date: 20110219
  Serious: Yes (Other)
  Sender: FDA-Public Use
  Company Number: US-ASTRAZENECA-2007UW19701

PATIENT
  Age: 17097 Day
  Sex: Male
  Weight: 117.9 kg

DRUGS (33)
  1. SEROQUEL [Suspect]
     Indication: SLEEP DISORDER
     Route: 048
     Dates: start: 20020216, end: 20040601
  2. SEROQUEL [Suspect]
     Indication: INSOMNIA
     Route: 048
     Dates: start: 20020216, end: 20040601
  3. SEROQUEL [Suspect]
     Indication: DEPRESSION
     Route: 048
     Dates: start: 20020216, end: 20040601
  4. SEROQUEL [Suspect]
     Indication: ANXIETY
     Route: 048
     Dates: start: 20020216, end: 20040601
  5. SEROQUEL [Suspect]
     Dosage: 50-300 MG
     Route: 048
     Dates: start: 20021118, end: 20040607
  6. SEROQUEL [Suspect]
     Dosage: 50-300 MG
     Route: 048
     Dates: start: 20021118, end: 20040607
  7. SEROQUEL [Suspect]
     Dosage: 50-300 MG
     Route: 048
     Dates: start: 20021118, end: 20040607
  8. SEROQUEL [Suspect]
     Dosage: 50-300 MG
     Route: 048
     Dates: start: 20021118, end: 20040607
  9. ADDERALL XR 10 [Concomitant]
     Dosage: 20-40 MG
     Dates: start: 20030812
  10. TENORMIN [Concomitant]
     Indication: TACHYCARDIA
     Dosage: 12.5- 75MG
     Dates: start: 20011217
  11. GEODON [Concomitant]
     Dates: start: 20021022, end: 20021111
  12. GEODON [Concomitant]
     Dates: start: 20021118
  13. CONCERTA [Concomitant]
     Dosage: 10-36 MG
     Dates: start: 20020928, end: 20021111
  14. CONCERTA [Concomitant]
     Dates: start: 20021118
  15. XANAX [Concomitant]
     Dosage: 1-4 MG
     Dates: start: 20011204, end: 20021118
  16. EFFEXOR XR [Concomitant]
     Indication: ANTIDEPRESSANT THERAPY
     Dosage: 37.5 MG-300 MG
     Dates: start: 20020827
  17. LAMICTAL [Concomitant]
     Dosage: 25-300 MG
     Dates: start: 20021111
  18. ZOLOFT [Concomitant]
     Indication: ANTIDEPRESSANT THERAPY
     Dosage: 150-200 MG
     Dates: start: 20020727
  19. RISPERDAL [Concomitant]
     Indication: DEPRESSION
     Dates: start: 20020727
  20. RISPERDAL [Concomitant]
     Dates: start: 20020501, end: 20020601
  21. PROZAC [Concomitant]
     Dates: start: 20020108
  22. AMITRIPTYLINE HCL [Concomitant]
     Dosage: 150 M
     Dates: start: 20020202
  23. RESTORIL [Concomitant]
     Indication: INSOMNIA
     Dates: start: 20021015
  24. ZONEGRAN [Concomitant]
     Dates: start: 20040607
  25. PAXIL [Concomitant]
     Indication: ANTIDEPRESSANT THERAPY
     Dates: start: 20021015
  26. LUVOX [Concomitant]
     Indication: ANTIDEPRESSANT THERAPY
     Dates: start: 20021015
  27. REMERON [Concomitant]
     Indication: ANTIDEPRESSANT THERAPY
     Dates: start: 20021015
  28. SERZONE [Concomitant]
     Indication: ANTIDEPRESSANT THERAPY
     Dates: start: 20021015
  29. CELEXA [Concomitant]
     Indication: ANTIDEPRESSANT THERAPY
     Dates: start: 20021015
  30. WELLBUTRIN [Concomitant]
     Indication: ANTIDEPRESSANT THERAPY
     Dates: start: 20021015
  31. ABILIFY [Concomitant]
     Dates: start: 20040607
  32. ABILIFY [Concomitant]
     Dates: start: 20030201, end: 20060801
  33. TRAZODONE HCL [Concomitant]
     Indication: SLEEP DISORDER
     Dates: start: 20040607

REACTIONS (3)
  - BLOOD GLUCOSE INCREASED [None]
  - DIABETES MELLITUS [None]
  - TYPE 2 DIABETES MELLITUS [None]
